FAERS Safety Report 23837633 (Version 1)
Quarter: 2024Q2

REPORT INFORMATION
  Report Type: Spontaneous
  Country: US (occurrence: US)
  Receive Date: 20240509
  Receipt Date: 20240509
  Transmission Date: 20240716
  Serious: Yes (Life-Threatening, Other)
  Sender: FDA-Public Use
  Company Number: US-PROCTER_AND_GAMBLE-GS24054557

PATIENT
  Age: 10 Year
  Sex: Female

DRUGS (1)
  1. CREST [Suspect]
     Active Substance: SODIUM FLUORIDE
     Indication: Routine health maintenance
     Dosage: DIME SIZE
     Route: 002
     Dates: start: 20240411, end: 202404

REACTIONS (3)
  - Stomatitis [Recovered/Resolved]
  - Oral mucosal erythema [Recovered/Resolved]
  - Oral discomfort [Recovered/Resolved]

NARRATIVE: CASE EVENT DATE: 20240411
